FAERS Safety Report 4333092-9 (Version None)
Quarter: 2004Q2

REPORT INFORMATION
  Report Type: 
  Country: None (occurrence: None)
  Receive Date: 20040402
  Receipt Date: 20040329
  Transmission Date: 20050107
  Serious: Yes (Other)
  Sender: FDA-Public Use
  Company Number: RB-597-2004

PATIENT
  Age: 36 Year
  Sex: Male

DRUGS (1)
  1. BUPRENORPHINE HYDROCHLORIDE [Suspect]
     Indication: DRUG DEPENDENCE
     Dosage: 2 MG  PO
     Route: 048
     Dates: start: 20031201

REACTIONS (1)
  - MONOPLEGIA [None]
